FAERS Safety Report 5097658-3 (Version None)
Quarter: 2006Q3

REPORT INFORMATION
  Report Type: 
  Country: None (occurrence: None)
  Receive Date: 20060831
  Receipt Date: 20060824
  Transmission Date: 20061208
  Serious: Yes (Death)
  Sender: FDA-Public Use
  Company Number: THYM-11037

PATIENT
  Age: 42 Year
  Sex: Male
  Weight: 115 kg

DRUGS (8)
  1. THYMOGLOBULIN [Suspect]
     Indication: LIVER TRANSPLANT
     Dosage: 170 MG QD IV
     Route: 042
     Dates: start: 20060824, end: 20060824
  2. TRANEXAMIC ACID [Concomitant]
  3. DDAVP [Concomitant]
  4. AMICAR [Concomitant]
  5. EPINEPHRINE [Concomitant]
  6. SODIUM BICARBONATE [Concomitant]
  7. CALCIUM CHLORIDE [Concomitant]
  8. ATROPINE [Concomitant]

REACTIONS (8)
  - CARDIAC ARREST [None]
  - COMPLICATIONS OF TRANSPLANT SURGERY [None]
  - CONDITION AGGRAVATED [None]
  - ELECTROCARDIOGRAM QRS COMPLEX ABNORMAL [None]
  - ELECTROCARDIOGRAM T WAVE ABNORMAL [None]
  - GENERAL PHYSICAL HEALTH DETERIORATION [None]
  - OPERATIVE HAEMORRHAGE [None]
  - PROCEDURAL HYPOTENSION [None]
